FAERS Safety Report 9452389 (Version 1)
Quarter: 2013Q3

REPORT INFORMATION
  Report Type: Spontaneous
  Country: US (occurrence: US)
  Receive Date: 20130812
  Receipt Date: 20130812
  Transmission Date: 20140515
  Serious: No
  Sender: FDA-Public Use
  Company Number: US-BAYER-2013-095586

PATIENT
  Age: 73 Year
  Sex: Female
  Weight: 79.37 kg

DRUGS (10)
  1. ALEVE CAPLET [Suspect]
     Dosage: UNK
  2. PERCOCET [Concomitant]
  3. HYDROCODONE [Concomitant]
  4. NORVASC [Concomitant]
  5. METOPROLOL [Concomitant]
  6. TOPROL XL [Concomitant]
  7. LISINOPRIL [Concomitant]
  8. ATORVASTATIN [Concomitant]
  9. CYMBALTA [Concomitant]
  10. ADVIL [Concomitant]
     Dosage: UNK
     Dates: end: 2012

REACTIONS (1)
  - Drug ineffective [None]
